FAERS Safety Report 10912718 (Version 1)
Quarter: 2015Q1

REPORT INFORMATION
  Report Type: Spontaneous
  Country: US (occurrence: None)
  Receive Date: 20150310
  Receipt Date: 20150310
  Transmission Date: 20150721
  Serious: Yes (Hospitalization)
  Sender: FDA-Public Use
  Company Number: 1823985-2015-0002

PATIENT
  Age: 62 Year
  Sex: Male

DRUGS (4)
  1. TOP CARE EFFERVESCENT COLD RELIEF [Suspect]
     Active Substance: ACETAMINOPHEN\CHLORPHENIRAMINE MALEATE\PHENYLEPHRINE HYDROCHLORIDE
     Indication: NASAL CONGESTION
     Dosage: 2 TABLETS TID ORALLY
     Route: 048
     Dates: start: 20150101, end: 20150102
  2. TOP CARE EFFERVESCENT COLD RELIEF [Suspect]
     Active Substance: ACETAMINOPHEN\CHLORPHENIRAMINE MALEATE\PHENYLEPHRINE HYDROCHLORIDE
     Indication: SNEEZING
     Dosage: 2 TABLETS TID ORALLY
     Route: 048
     Dates: start: 20150101, end: 20150102
  3. TOP CARE EFFERVESCENT COLD RELIEF [Suspect]
     Active Substance: ACETAMINOPHEN\CHLORPHENIRAMINE MALEATE\PHENYLEPHRINE HYDROCHLORIDE
     Indication: RHINORRHOEA
     Dosage: 2 TABLETS TID ORALLY
     Route: 048
     Dates: start: 20150101, end: 20150102
  4. TOP CARE EFFERVESCENT COLD RELIEF [Suspect]
     Active Substance: ACETAMINOPHEN\CHLORPHENIRAMINE MALEATE\PHENYLEPHRINE HYDROCHLORIDE
     Indication: HEADACHE
     Dosage: 2 TABLETS TID ORALLY
     Route: 048
     Dates: start: 20150101, end: 20150102

REACTIONS (2)
  - Haematemesis [None]
  - Ulcer haemorrhage [None]
